FAERS Safety Report 6551472-8 (Version None)
Quarter: 2010Q1

REPORT INFORMATION
  Report Type: 
  Country: None (occurrence: None)
  Receive Date: 20100126
  Receipt Date: 20100113
  Transmission Date: 20100710
  Serious: Yes (Hospitalization, Other)
  Sender: FDA-Public Use
  Company Number: ES-CELGENEUS-144-21880-09122308

PATIENT
  Sex: Male

DRUGS (9)
  1. REVLIMID [Suspect]
     Indication: MULTIPLE MYELOMA
     Route: 048
     Dates: start: 20091215, end: 20091229
  2. DEXAMETHASONE [Suspect]
     Indication: MULTIPLE MYELOMA
     Route: 065
     Dates: end: 20091229
  3. ADIRO [Concomitant]
     Indication: THROMBOSIS PROPHYLAXIS
     Route: 048
     Dates: start: 20091215
  4. OMEPRAZOLE [Concomitant]
     Indication: PROPHYLAXIS
     Route: 048
     Dates: start: 20091215
  5. CODEISAN [Concomitant]
     Indication: INSOMNIA
     Route: 048
  6. CODEISAN [Concomitant]
     Indication: NERVOUSNESS
  7. EPO [Concomitant]
     Dosage: 30 X 10^8 UI
     Route: 065
     Dates: start: 20091215
  8. PARACETAMOL [Concomitant]
     Route: 048
  9. KONAKION [Concomitant]
     Indication: VITAMIN K
     Route: 065
     Dates: start: 20100110, end: 20100113

REACTIONS (1)
  - CHOLANGITIS [None]
